FAERS Safety Report 6375247-8 (Version None)
Quarter: 2009Q3

REPORT INFORMATION
  Report Type: 
  Country: None (occurrence: None)
  Receive Date: 20090924
  Receipt Date: 20090916
  Transmission Date: 20100115
  Serious: Yes (Other)
  Sender: FDA-Public Use
  Company Number: A0599188A

PATIENT
  Age: 64 Year
  Sex: Male
  Weight: 103.6 kg

DRUGS (2)
  1. REQUIP [Suspect]
     Indication: PARKINSON'S DISEASE
     Dosage: 3MG FOUR TIMES PER DAY
     Route: 048
     Dates: start: 20020606, end: 20060301
  2. SINEMET [Concomitant]

REACTIONS (3)
  - ABNORMAL BEHAVIOUR [None]
  - LOSS OF CONSCIOUSNESS [None]
  - PATHOLOGICAL GAMBLING [None]
